FAERS Safety Report 17495571 (Version 1)
Quarter: 2020Q1

REPORT INFORMATION
  Report Type: Spontaneous
  Country: CA (occurrence: CA)
  Receive Date: 20200303
  Receipt Date: 20200303
  Transmission Date: 20200409
  Serious: Yes (Other)
  Sender: FDA-Public Use
  Company Number: CA-PFIZER INC-2017487713

PATIENT
  Age: 70 Year
  Sex: Male

DRUGS (1)
  1. XELJANZ [Suspect]
     Active Substance: TOFACITINIB CITRATE
     Indication: RHEUMATOID ARTHRITIS
     Dosage: 5 MG, 2X/DAY
     Route: 048
     Dates: start: 20171018

REACTIONS (5)
  - C-reactive protein increased [Unknown]
  - Therapeutic product effect incomplete [Unknown]
  - Neoplasm [Unknown]
  - Condition aggravated [Unknown]
  - Cellulitis [Unknown]

NARRATIVE: CASE EVENT DATE: 20200220
